FAERS Safety Report 8956172 (Version 1)
Quarter: 2012Q4

REPORT INFORMATION
  Report Type: 
  Country: IL (occurrence: IL)
  Receive Date: 20121210
  Receipt Date: 20121210
  Transmission Date: 20130627
  Serious: Yes (Other)
  Sender: FDA-Public Use
  Company Number: PHHY2012IL112936

PATIENT
  Age: 60 Year
  Sex: Male

DRUGS (2)
  1. CERTICAN [Suspect]
     Dosage: 1.25 mg, BID
  2. CERTICAN [Suspect]
     Dosage: 1.75 mg, QD

REACTIONS (2)
  - Skin wound [Unknown]
  - Rash generalised [Unknown]
